FAERS Safety Report 7966835-3 (Version None)
Quarter: 2011Q4

REPORT INFORMATION
  Report Type: 
  Country: None (occurrence: None)
  Receive Date: 20111209
  Receipt Date: 20111201
  Transmission Date: 20120403
  Serious: No
  Sender: FDA-Public Use
  Company Number: US-BIOGENIDEC-2011BI045710

PATIENT
  Sex: Female

DRUGS (2)
  1. AVONEX [Suspect]
     Indication: MULTIPLE SCLEROSIS
     Route: 030
     Dates: start: 20071127
  2. AVONEX [Suspect]
     Route: 030
     Dates: start: 19980401, end: 20060102

REACTIONS (3)
  - ARTHRITIS [None]
  - DRY MOUTH [None]
  - TOOTH INFECTION [None]
